FAERS Safety Report 9174386 (Version 1)
Quarter: 2013Q1

REPORT INFORMATION
  Report Type: Spontaneous
  Country: CA (occurrence: CA)
  Receive Date: 20130320
  Receipt Date: 20130320
  Transmission Date: 20140127
  Serious: Yes (Other)
  Sender: FDA-Public Use
  Company Number: PHHY2012CA100825

PATIENT
  Age: 50 Year
  Sex: Female

DRUGS (3)
  1. ZOMETA [Suspect]
     Indication: LUNG NEOPLASM MALIGNANT
     Dosage: 4 MG, EVERY 4 WEEKS
     Route: 042
     Dates: start: 20121026, end: 20130215
  2. ERLOTINIB [Concomitant]
     Dosage: UNK UKN, UNK
  3. CHEMOTHERAPEUTICS [Concomitant]

REACTIONS (7)
  - Blood calcium increased [Unknown]
  - Bone lesion [Unknown]
  - Bone pain [Unknown]
  - Heart rate increased [Unknown]
  - Body temperature increased [Unknown]
  - Nausea [Recovered/Resolved]
  - Injection site pain [Unknown]
